APPROVED DRUG PRODUCT: TONMYA
Active Ingredient: CYCLOBENZAPRINE HYDROCHLORIDE
Strength: 2.8MG
Dosage Form/Route: TABLET;SUBLINGUAL
Application: N219428 | Product #001
Applicant: TONIX PHARMACEUTICALS INC
Approved: Aug 15, 2025 | RLD: Yes | RS: Yes | Type: RX

PATENTS:
Patent 10117936 | Expires: Mar 14, 2034
Patent 10864175 | Expires: Mar 14, 2034
Patent 9636408 | Expires: Mar 14, 2034
Patent 9956188 | Expires: Mar 14, 2034

EXCLUSIVITY:
Code: NP | Date: Aug 15, 2028